FAERS Safety Report 8435123-3 (Version None)
Quarter: 2012Q2

REPORT INFORMATION
  Report Type: 
  Country: None (occurrence: None)
  Receive Date: 20120614
  Receipt Date: 20120611
  Transmission Date: 20120825
  Serious: Yes (Hospitalization, Other)
  Sender: FDA-Public Use
  Company Number: PHHO2008DE06919

PATIENT
  Sex: Male
  Weight: 85.9 kg

DRUGS (2)
  1. SANDIMMUNE [Suspect]
     Indication: RENAL TRANSPLANT
     Dosage: 500 MG DAILY
     Route: 048
  2. MYCOPHENOLIC ACID [Suspect]
     Indication: RENAL TRANSPLANT
     Dosage: 1440 MG, BID
     Route: 048
     Dates: start: 20071008

REACTIONS (8)
  - NEPHROPATHY TOXIC [None]
  - RENAL GRAFT LOSS [None]
  - RENAL TUBULAR NECROSIS [None]
  - TOXICITY TO VARIOUS AGENTS [None]
  - RENAL ARTERY STENOSIS [None]
  - RENAL FAILURE ACUTE [None]
  - PRERENAL FAILURE [None]
  - PERIPHERAL ARTERY DISSECTION [None]
